FAERS Safety Report 23128157 (Version 4)
Quarter: 2024Q4

REPORT INFORMATION
  Report Type: Spontaneous
  Country: US (occurrence: US)
  Receive Date: 20231031
  Receipt Date: 20241101
  Transmission Date: 20250115
  Serious: Yes (Life-Threatening, Hospitalization, Other)
  Sender: MSN LABORATORIES PRIVATE LIMITED
  Company Number: US-MLMSERVICE-20231005-4591098-1

PATIENT

DRUGS (13)
  1. PREGABALIN [Suspect]
     Active Substance: PREGABALIN
     Indication: Antidepressant therapy
     Dosage: 200 MG THREE TIMES A DAY FOR SEVERAL WEEKS
     Route: 065
  2. PREGABALIN [Suspect]
     Active Substance: PREGABALIN
     Indication: Drug use disorder
  3. SUBOXONE [Suspect]
     Active Substance: BUPRENORPHINE HYDROCHLORIDE\NALOXONE HYDROCHLORIDE
     Indication: Drug use disorder
     Dosage: 16 MG/4 MG DAILY
     Route: 065
  4. FENTANYL [Suspect]
     Active Substance: FENTANYL
     Indication: Analgesic therapy
     Dosage: DRIP (2 MCG/KG)
     Route: 042
  5. FENTANYL [Suspect]
     Active Substance: FENTANYL
     Indication: Sedation
     Dosage: DOSES ADJUSTED TO MAINTAIN RICHMOND AGITATION-SEDATION SCALE AT -4
     Route: 065
  6. FENTANYL [Suspect]
     Active Substance: FENTANYL
     Dosage: DOSES ADJUSTED TO MAINTAIN RICHMOND AGITATION-SEDATION SCALE (RASS) AT -4
     Route: 065
  7. AMITRIPTYLINE [Suspect]
     Active Substance: AMITRIPTYLINE
     Indication: Antidepressant therapy
     Dosage: 75 MG DAILY
     Route: 065
  8. AMITRIPTYLINE [Suspect]
     Active Substance: AMITRIPTYLINE
     Indication: Drug use disorder
  9. PROPOFOL [Concomitant]
     Active Substance: PROPOFOL
     Indication: Sedation
     Dosage: DOSE OF 3 MG/KG
     Route: 065
  10. PROPOFOL [Concomitant]
     Active Substance: PROPOFOL
     Dosage: DOSES ADJUSTED TO MAINTAIN RICHMOND AGITATION-SEDATION SCALE (RASS) AT -4
     Route: 065
  11. PROPOFOL [Concomitant]
     Active Substance: PROPOFOL
     Dosage: DOSES ADJUSTED TO MAINTAIN RICHMOND AGITATION-SEDATION SCALE (RASS) AT -4
     Route: 065
  12. CEFTRIAXONE [Concomitant]
     Active Substance: CEFTRIAXONE
     Indication: Product used for unknown indication
     Route: 042
  13. AZITHROMYCIN [Concomitant]
     Active Substance: AZITHROMYCIN
     Indication: Product used for unknown indication
     Route: 048

REACTIONS (3)
  - Mental status changes [Recovering/Resolving]
  - Serotonin syndrome [Recovered/Resolved]
  - Drug interaction [Recovering/Resolving]
